FAERS Safety Report 8098375-8 (Version None)
Quarter: 2012Q1

REPORT INFORMATION
  Report Type: 
  Country: None (occurrence: None)
  Receive Date: 20120131
  Receipt Date: 20120123
  Transmission Date: 20120608
  Serious: Yes (Other)
  Sender: FDA-Public Use
  Company Number: US-JNJFOC-20120111208

PATIENT

DRUGS (2)
  1. PSEUDOEPHEDRINE HCL [Suspect]
     Route: 065
  2. PSEUDOEPHEDRINE HCL [Suspect]
     Indication: PRODUCT USED FOR UNKNOWN INDICATION
     Dosage: INAPPROPRIATELY HIGH DOSES
     Route: 065

REACTIONS (3)
  - HALLUCINATION [None]
  - OVERDOSE [None]
  - WRONG DRUG ADMINISTERED [None]
